FAERS Safety Report 10846950 (Version 2)
Quarter: 2015Q1

REPORT INFORMATION
  Report Type: Report from Study
  Country: JP (occurrence: JP)
  Receive Date: 20150220
  Receipt Date: 20150319
  Transmission Date: 20150721
  Serious: Yes (Death, Life-Threatening, Hospitalization, Other)
  Sender: FDA-Public Use
  Company Number: PHJP2015JP001999

PATIENT
  Age: 82 Year
  Sex: Male
  Weight: 51 kg

DRUGS (12)
  1. EXELON [Suspect]
     Active Substance: RIVASTIGMINE TARTRATE
     Dosage: 18 MG, QD (PATCH 10, 9.5 MG/ 24H)
     Route: 062
     Dates: start: 20131008, end: 20150129
  2. CARVEDILOL. [Concomitant]
     Active Substance: CARVEDILOL
     Indication: HYPERTENSION
     Dosage: 10 MG, BID
     Route: 048
     Dates: end: 20150129
  3. FUROSEMIDE. [Concomitant]
     Active Substance: FUROSEMIDE
     Indication: CARDIAC FAILURE CONGESTIVE
     Dosage: 10 MG, QD
     Route: 048
     Dates: end: 20150129
  4. DIART [Concomitant]
     Active Substance: AZOSEMIDE
     Indication: CARDIAC FAILURE CONGESTIVE
     Dosage: 30 MG, QD
     Route: 048
     Dates: end: 20150129
  5. EXELON [Suspect]
     Active Substance: RIVASTIGMINE TARTRATE
     Dosage: 13.5 MG, (PATCH 7.5, 6.9 MG/ 24H)
     Route: 062
     Dates: start: 20130910, end: 20131007
  6. EXELON [Suspect]
     Active Substance: RIVASTIGMINE TARTRATE
     Indication: DEMENTIA ALZHEIMER^S TYPE
     Dosage: 4.5 MG, QD (PATCH 2.5, 1.9 MG/ 24H)
     Route: 062
     Dates: start: 20130716, end: 20130812
  7. ALLOPURINOL. [Concomitant]
     Active Substance: ALLOPURINOL
     Indication: HYPERURICAEMIA
     Dosage: 100 MG, QD
     Route: 048
     Dates: end: 20150129
  8. NITOROL R [Concomitant]
     Indication: ANGINA PECTORIS
     Dosage: 20 MG, BID
     Route: 048
     Dates: end: 20150129
  9. WARFARIN [Concomitant]
     Active Substance: WARFARIN
     Indication: ATRIAL FIBRILLATION
     Dosage: 2 MG, QD
     Route: 048
     Dates: end: 20150129
  10. EXELON [Suspect]
     Active Substance: RIVASTIGMINE TARTRATE
     Dosage: 9 MG, (PATCH 5, 4.6 MG/ 24H)
     Route: 062
     Dates: start: 20130813, end: 20130909
  11. PRAVASTATIN NA [Concomitant]
     Indication: DYSLIPIDAEMIA
     Dosage: 10 MG, QD
     Route: 048
     Dates: end: 20150129
  12. AMLODIPINE [Concomitant]
     Active Substance: AMLODIPINE BESYLATE
     Indication: HYPERTENSION
     Dosage: 5 MG, QD
     Route: 048
     Dates: end: 20150129

REACTIONS (7)
  - Pyrexia [Fatal]
  - Neoplasm malignant [Not Recovered/Not Resolved]
  - Neck mass [Unknown]
  - General physical health deterioration [Unknown]
  - Pneumonia [Fatal]
  - Metastases to lymph nodes [Not Recovered/Not Resolved]
  - Inflammation [Fatal]

NARRATIVE: CASE EVENT DATE: 201407
